FAERS Safety Report 17501078 (Version 1)
Quarter: 2020Q1

REPORT INFORMATION
  Report Type: Report from Study
  Country: US (occurrence: US)
  Receive Date: 20200305
  Receipt Date: 20200305
  Transmission Date: 20200409
  Serious: Yes (Other)
  Sender: FDA-Public Use
  Company Number: US-JNJFOC-20200232397

PATIENT
  Age: 44 Year
  Sex: Female

DRUGS (4)
  1. EFFEXOR [Concomitant]
     Active Substance: VENLAFAXINE HYDROCHLORIDE
  2. STELARA [Suspect]
     Active Substance: USTEKINUMAB
     Indication: CROHN^S DISEASE
     Route: 058
     Dates: start: 20170101, end: 201801
  3. STELARA [Suspect]
     Active Substance: USTEKINUMAB
     Route: 058
     Dates: start: 201812
  4. LORAZEPAM. [Concomitant]
     Active Substance: LORAZEPAM

REACTIONS (2)
  - Colitis ulcerative [Unknown]
  - Colon cancer [Unknown]

NARRATIVE: CASE EVENT DATE: 201803
